FAERS Safety Report 9848865 (Version 1)
Quarter: 2013Q4

REPORT INFORMATION
  Report Type: Spontaneous
  Country: US (occurrence: None)
  Receive Date: 20131226
  Receipt Date: 20131226
  Transmission Date: 20140711
  Serious: Yes (Hospitalization)
  Sender: FDA-Public Use
  Company Number: PHEH2013US002871

PATIENT
  Age: 40 Year
  Sex: Female
  Weight: 86 kg

DRUGS (3)
  1. TRILEPTAL [Suspect]
     Indication: EPILEPSY
  2. DILANTIN (PHENYTOIN SODIUM) [Suspect]
     Indication: EPILEPSY
  3. KEPPRA (LEVETIRACETAM) [Suspect]
     Indication: EPILEPSY

REACTIONS (2)
  - Grand mal convulsion [None]
  - Convulsion [None]
